FAERS Safety Report 11587588 (Version 4)
Quarter: 2016Q1

REPORT INFORMATION
  Report Type: Report from Study
  Country: DE (occurrence: DE)
  Receive Date: 20151001
  Receipt Date: 20160120
  Transmission Date: 20160525
  Serious: Yes (Hospitalization)
  Sender: FDA-Public Use
  Company Number: DE-BAXALTA-2015BLT001932

PATIENT
  Age: 49 Year
  Sex: Male
  Weight: 92 kg

DRUGS (10)
  1. PEGYLATED RECOMBINANT HUMAN FACTOR VIII [Suspect]
     Active Substance: RURIOCTOCOG ALFA PEGOL
     Indication: FACTOR VIII DEFICIENCY
     Dosage: 1000 IU, EVERY 4 DAYS
     Route: 065
     Dates: start: 20131210, end: 20131210
  2. DICLOFENAC SODIUM. [Concomitant]
     Active Substance: DICLOFENAC SODIUM
     Indication: PAIN
     Dosage: 75 MG, INTERMITTENT
     Route: 048
     Dates: start: 1999
  3. PEGYLATED RECOMBINANT HUMAN FACTOR VIII [Suspect]
     Active Substance: RURIOCTOCOG ALFA PEGOL
     Dosage: EVERY 84 HOURS
     Route: 042
     Dates: start: 20150918, end: 20150918
  4. PEGYLATED RECOMBINANT HUMAN FACTOR VIII [Suspect]
     Active Substance: RURIOCTOCOG ALFA PEGOL
     Dosage: 500 IU, EVERY 4 DAYS
     Route: 042
     Dates: start: 20131210, end: 20131210
  5. PREDNISOLONE ACETATE. [Concomitant]
     Active Substance: PREDNISOLONE ACETATE
     Indication: MYOSITIS
     Dosage: 2.5 MG, ONCE
     Route: 048
     Dates: start: 20150420
  6. PEGYLATED RECOMBINANT HUMAN FACTOR VIII [Suspect]
     Active Substance: RURIOCTOCOG ALFA PEGOL
     Dosage: EVERY 84 HOURS
     Route: 042
     Dates: start: 20150918, end: 20150918
  7. RAMIPRIL. [Concomitant]
     Active Substance: RAMIPRIL
     Indication: HYPERTENSION
     Dosage: 5 MG, ONCE
     Route: 048
     Dates: start: 20150420
  8. LEVOTHYROXINE SODIUM. [Concomitant]
     Active Substance: LEVOTHYROXINE SODIUM
     Indication: PRODUCT USED FOR UNKNOWN INDICATION
     Dosage: 175 MG, ONCE
     Route: 048
     Dates: start: 2006
  9. PREDNISOLONE ACETATE. [Concomitant]
     Active Substance: PREDNISOLONE ACETATE
     Indication: VASCULITIS
  10. NALOXONE HYDROCHLORIDE, TILIDINE HYDROCHLORIDE [Concomitant]
     Active Substance: NALOXONE HYDROCHLORIDE\TILIDINE HYDROCHLORIDE
     Indication: ARTHROPATHY
     Dosage: 5 MG, INTERMITTENT
     Route: 048
     Dates: start: 1999

REACTIONS (1)
  - Plasmodium falciparum infection [Recovering/Resolving]

NARRATIVE: CASE EVENT DATE: 20150921
